FAERS Safety Report 6691733-5 (Version None)
Quarter: 2010Q2

REPORT INFORMATION
  Report Type: 
  Country: None (occurrence: None)
  Receive Date: 20100422
  Receipt Date: 20090915
  Transmission Date: 20101027
  Serious: No
  Sender: FDA-Public Use
  Company Number: US-ASTRAZENECA-2009SE13880

PATIENT
  Age: 45 Year
  Sex: Female
  Weight: 131.5 kg

DRUGS (3)
  1. METOPROLOL SUCCINATE [Suspect]
     Indication: HYPERTENSION
     Route: 048
     Dates: start: 20040101, end: 20081201
  2. METOPROLOL TARTRATE [Suspect]
     Indication: HYPERTENSION
     Route: 048
     Dates: start: 20081201
  3. FUROSEMIDE [Concomitant]
     Indication: POLYURIA

REACTIONS (4)
  - AFFECT LABILITY [None]
  - ANOSMIA [None]
  - DIZZINESS [None]
  - FEELING ABNORMAL [None]
